FAERS Safety Report 9436474 (Version 1)
Quarter: 2013Q3

REPORT INFORMATION
  Report Type: Spontaneous
  Country: AR (occurrence: AR)
  Receive Date: 20130802
  Receipt Date: 20130802
  Transmission Date: 20140515
  Serious: Yes (Death)
  Sender: FDA-Public Use
  Company Number: AR-ROCHE-1256016

PATIENT
  Age: 67 Year
  Sex: Female

DRUGS (1)
  1. LUCENTIS [Suspect]
     Indication: MACULOPATHY
     Route: 050
     Dates: start: 201106

REACTIONS (1)
  - Diabetic complication [Fatal]
